FAERS Safety Report 7960067-0 (Version None)
Quarter: 2011Q4

REPORT INFORMATION
  Report Type: 
  Country: None (occurrence: None)
  Receive Date: 20111201
  Receipt Date: 20111115
  Transmission Date: 20120403
  Serious: Yes (Death)
  Sender: FDA-Public Use
  Company Number: 151

PATIENT
  Age: 50 Year
  Sex: Female
  Weight: 68 kg

DRUGS (12)
  1. ATROPINE (ATROPINE SOLUTION (EXCEPT SYRUP) [Concomitant]
  2. DEPAKOTE [Concomitant]
  3. CYANOCOBALAMIN [Concomitant]
  4. FAZACLO ODT [Suspect]
     Indication: SCHIZOAFFECTIVE DISORDER
     Dosage: 300 MG, QD, ORAL
     Route: 048
     Dates: start: 20060728, end: 20070915
  5. NICOTINE [Concomitant]
  6. COLACE (DOCUSATE SODIUM) [Concomitant]
  7. PROTONIX (PROTONIX) [Concomitant]
  8. DESMOPRESSIN ACETATE [Concomitant]
  9. AMANTADINE HCL [Concomitant]
  10. ANTIVERT [Concomitant]
  11. ZOLOFT [Concomitant]
  12. LORAZEPAM [Concomitant]

REACTIONS (3)
  - ESSENTIAL HYPERTENSION [None]
  - FALL [None]
  - CEREBRAL HAEMORRHAGE [None]
